FAERS Safety Report 7332491-0 (Version None)
Quarter: 2011Q1

REPORT INFORMATION
  Report Type: 
  Country: None (occurrence: None)
  Receive Date: 20110304
  Receipt Date: 20110218
  Transmission Date: 20110831
  Serious: Yes (Other)
  Sender: FDA-Public Use
  Company Number: BR-ELI_LILLY_AND_COMPANY-BR201102005667

PATIENT
  Sex: Male

DRUGS (2)
  1. BYETTA [Suspect]
     Indication: DIABETES MELLITUS
     Dosage: 5 UG, 2/D
     Route: 065
  2. HUMALOG MIX 50 [Concomitant]
     Indication: DIABETES MELLITUS
     Dosage: 62 IU, DAILY (1/D)
     Route: 065

REACTIONS (4)
  - OFF LABEL USE [None]
  - NAUSEA [None]
  - FEELING ABNORMAL [None]
  - HYPOGLYCAEMIA [None]
